FAERS Safety Report 20476875 (Version 1)
Quarter: 2022Q1

REPORT INFORMATION
  Report Type: Spontaneous
  Country: US (occurrence: US)
  Receive Date: 20220215
  Receipt Date: 20220215
  Transmission Date: 20220423
  Serious: No
  Sender: FDA-Public Use
  Company Number: US-SA-SAC20220209001536

PATIENT
  Sex: Male

DRUGS (2)
  1. LANTUS SOLOSTAR [Suspect]
     Active Substance: INSULIN GLARGINE
  2. OZEMPIC [Concomitant]
     Active Substance: SEMAGLUTIDE
     Indication: Adverse drug reaction

REACTIONS (1)
  - Adverse drug reaction [Unknown]
